FAERS Safety Report 8486834-5 (Version None)
Quarter: 2012Q3

REPORT INFORMATION
  Report Type: 
  Country: None (occurrence: None)
  Receive Date: 20120704
  Receipt Date: 20120623
  Transmission Date: 20120928
  Serious: Yes (Other)
  Sender: FDA-Public Use
  Company Number: BE-PAR PHARMACEUTICAL, INC-2012SCPR004471

PATIENT

DRUGS (8)
  1. ACYCLOVIR [Suspect]
     Indication: EVIDENCE BASED TREATMENT
  2. CEFTRIAXONE [Suspect]
     Indication: ENCEPHALITIS
     Dosage: UNK, UNKNOWN
     Route: 065
  3. DOXYCYCLINE HYCLATE [Suspect]
     Indication: ENCEPHALITIS
     Dosage: UNK, UNKNOWN
     Route: 065
  4. DOXYCYCLINE HYCLATE [Suspect]
     Indication: EVIDENCE BASED TREATMENT
  5. AMPICILLIN [Suspect]
     Indication: EVIDENCE BASED TREATMENT
  6. ACYCLOVIR [Suspect]
     Indication: ENCEPHALITIS
     Dosage: UNK, UNKNOWN
     Route: 065
  7. CEFTRIAXONE [Suspect]
     Indication: EVIDENCE BASED TREATMENT
  8. AMPICILLIN [Suspect]
     Indication: ENCEPHALITIS
     Dosage: UNK, UNKNOWN
     Route: 065

REACTIONS (1)
  - JARISCH-HERXHEIMER REACTION [None]
